FAERS Safety Report 8408181-X (Version None)
Quarter: 2012Q2

REPORT INFORMATION
  Report Type: 
  Country: None (occurrence: None)
  Receive Date: 20120604
  Receipt Date: 20120530
  Transmission Date: 20120825
  Serious: Yes (Other)
  Sender: FDA-Public Use
  Company Number: CHPA2012US011125

PATIENT
  Age: 77 Year
  Sex: Female

DRUGS (3)
  1. EXCEDRIN EXTRA STRENGTH TABLETS [Suspect]
     Indication: PAIN
     Dosage: 2 DF, QD
     Route: 048
  2. ACETAMINOPHEN [Concomitant]
  3. ANALGESICS [Concomitant]
     Indication: PAIN
     Dosage: UNK

REACTIONS (5)
  - LUNG DISORDER [None]
  - LOWER LIMB FRACTURE [None]
  - INSOMNIA [None]
  - DYSPNOEA [None]
  - INCORRECT DRUG ADMINISTRATION DURATION [None]
